FAERS Safety Report 8209731-9 (Version None)
Quarter: 2012Q1

REPORT INFORMATION
  Report Type: 
  Country: None (occurrence: None)
  Receive Date: 20120314
  Receipt Date: 20120302
  Transmission Date: 20120608
  Serious: Yes (Death, Hospitalization)
  Sender: FDA-Public Use
  Company Number: AR-PFIZER INC-AR-WYE-H10037009

PATIENT
  Age: 64 Year
  Sex: Male
  Weight: 73 kg

DRUGS (3)
  1. TEMSIROLIMUS [Suspect]
     Indication: RENAL CANCER
     Dosage: 25.0 MG, WEEKLY
     Route: 042
     Dates: start: 20090528, end: 20090702
  2. RANITIDINE [Concomitant]
     Indication: PROPHYLAXIS AGAINST GASTROINTESTINAL ULCER
     Dosage: 150 MG, UNK
     Route: 048
     Dates: start: 20070101, end: 20090707
  3. METFORMIN [Concomitant]
     Indication: DIABETES MELLITUS
     Dosage: 350 MG, UNK
     Route: 048
     Dates: start: 20070101, end: 20090707

REACTIONS (2)
  - RESPIRATORY FAILURE [None]
  - PNEUMONIA [None]
